FAERS Safety Report 4845390-0 (Version None)
Quarter: 2005Q4

REPORT INFORMATION
  Report Type: 
  Country: None (occurrence: None)
  Receive Date: 20051125
  Receipt Date: 20051116
  Transmission Date: 20060501
  Serious: Yes (Hospitalization, Other)
  Sender: FDA-Public Use
  Company Number: 2005155151

PATIENT
  Age: 60 Year
  Sex: Female

DRUGS (4)
  1. ZOLOFT [Suspect]
     Indication: ILL-DEFINED DISORDER
     Dosage: 50 MG (50 MG, 1 IN 1 D),
  2. ANTIHYPERTENSIVES (ANTIHYPERTENSIVES) [Concomitant]
  3. LEXOTANIL (BROMAZEPAM) [Concomitant]
  4. STEDON (DIAZEPAM) [Concomitant]

REACTIONS (5)
  - BLOOD GASES ABNORMAL [None]
  - CYANOSIS [None]
  - NERVOUS SYSTEM DISORDER [None]
  - RESPIRATORY DISORDER [None]
  - SLEEP APNOEA SYNDROME [None]
